FAERS Safety Report 10429430 (Version 1)
Quarter: 2014Q3

REPORT INFORMATION
  Report Type: Spontaneous
  Country: US (occurrence: None)
  Receive Date: 20140902
  Receipt Date: 20140902
  Transmission Date: 20150326
  Serious: No
  Sender: FDA-Public Use
  Company Number: None

PATIENT
  Age: 71 Year
  Sex: Male

DRUGS (15)
  1. COLLAGENASE [Concomitant]
     Active Substance: COLLAGENASE CLOSTRIDIUM HISTOLYTICUM
  2. DOCUSATE [Concomitant]
     Active Substance: DOCUSATE
  3. HEPARIN [Concomitant]
     Active Substance: HEPARIN SODIUM
  4. LACTOBACILLUS [Concomitant]
     Active Substance: LACTOBACILLUS ACIDOPHILUS
  5. LIDOCAINE. [Concomitant]
     Active Substance: LIDOCAINE
  6. SENNA [Concomitant]
     Active Substance: SENNA LEAF\SENNOSIDES\SENNOSIDES A AND B
  7. SERTRALINE [Concomitant]
     Active Substance: SERTRALINE HYDROCHLORIDE
  8. INSULIN ASPART [Concomitant]
     Active Substance: INSULIN ASPART
  9. FUROSEMIDE. [Concomitant]
     Active Substance: FUROSEMIDE
  10. LANSOPRAZOLE. [Concomitant]
     Active Substance: LANSOPRAZOLE
  11. ACETAMINOPHEN. [Concomitant]
     Active Substance: ACETAMINOPHEN
  12. METOPROLOL [Concomitant]
     Active Substance: METOPROLOL
  13. MULTIVITAMIN [Concomitant]
     Active Substance: VITAMINS
  14. DAPTOMYCIN [Suspect]
     Active Substance: DAPTOMYCIN
     Indication: INFECTION
     Route: 042
     Dates: start: 20140618, end: 20140722
  15. TAMSULOSIN [Concomitant]
     Active Substance: TAMSULOSIN

REACTIONS (1)
  - Blood creatine phosphokinase increased [None]

NARRATIVE: CASE EVENT DATE: 20140722
